FAERS Safety Report 7518752-0 (Version None)
Quarter: 2011Q2

REPORT INFORMATION
  Report Type: 
  Country: None (occurrence: None)
  Receive Date: 20110601
  Receipt Date: 20110601
  Transmission Date: 20111010
  Serious: No
  Sender: FDA-Public Use
  Company Number: None

PATIENT
  Age: 45 Year
  Sex: Female

DRUGS (1)
  1. OXYCONTIN [Suspect]
     Indication: PAIN
     Dosage: 20MG TID PO
     Route: 048
     Dates: start: 20101201, end: 20110430

REACTIONS (7)
  - ABDOMINAL PAIN UPPER [None]
  - FLANK PAIN [None]
  - GASTRIC DISORDER [None]
  - WEIGHT DECREASED [None]
  - CONSTIPATION [None]
  - DECREASED APPETITE [None]
  - APHAGIA [None]
